FAERS Safety Report 20500068 (Version 4)
Quarter: 2022Q2

REPORT INFORMATION
  Report Type: Report from Study
  Country: US (occurrence: US)
  Receive Date: 20220222
  Receipt Date: 20220401
  Transmission Date: 20220721
  Serious: Yes (Hospitalization, Other)
  Sender: FDA-Public Use
  Company Number: US-HORIZON THERAPEUTICS-HZN-2022-000949

PATIENT

DRUGS (13)
  1. KRYSTEXXA [Suspect]
     Active Substance: PEGLOTICASE
     Indication: Gouty tophus
     Dosage: 8 MG, EVERY 2 WEEKS
     Route: 042
     Dates: start: 20220118
  2. KRYSTEXXA [Suspect]
     Active Substance: PEGLOTICASE
     Indication: Gout
     Dosage: 8 MG, EVERY 2 WEEKS
     Route: 042
     Dates: start: 20220201
  3. KRYSTEXXA [Suspect]
     Active Substance: PEGLOTICASE
     Dosage: 1 MG, EVERY 2 WEEKS
     Route: 042
     Dates: start: 20220215, end: 20220215
  4. HYDROCHLOROTHIAZIDE\LISINOPRIL [Concomitant]
     Active Substance: HYDROCHLOROTHIAZIDE\LISINOPRIL
     Indication: Hypertension
     Dosage: 20-25 MG, QD
  5. ASPIRIN [Concomitant]
     Active Substance: ASPIRIN
     Indication: Coronary artery disease
     Dosage: 81 MG
  6. LOVASTATIN [Concomitant]
     Active Substance: LOVASTATIN
     Indication: Hyperlipidaemia
     Dosage: 20 MG, QD
  7. OMEPRAZOLE [Concomitant]
     Active Substance: OMEPRAZOLE
     Indication: Gastrooesophageal reflux disease
     Dosage: 20 MG, QD
  8. ACETAMINOPHEN\HYDROCODONE [Concomitant]
     Active Substance: ACETAMINOPHEN\HYDROCODONE
     Indication: Back pain
     Dosage: 5/325 MG, PRN
  9. CELLCEPT [Concomitant]
     Active Substance: MYCOPHENOLATE MOFETIL
     Indication: Gout
     Dosage: 500 MG, BID
     Route: 048
     Dates: start: 20220104, end: 20220215
  10. CELLCEPT [Concomitant]
     Active Substance: MYCOPHENOLATE MOFETIL
     Indication: Immunosuppression
  11. COLCHICINE [Concomitant]
     Active Substance: COLCHICINE
     Indication: Gout
  12. PREDNISONE [Concomitant]
     Active Substance: PREDNISONE
     Indication: Gout
     Dosage: 20 MG, PRN
  13. FEXOFENADINE [Concomitant]
     Active Substance: FEXOFENADINE HYDROCHLORIDE
     Indication: Premedication
     Dosage: 180 MG

REACTIONS (14)
  - Cardiac disorder [Recovering/Resolving]
  - Anaphylactic reaction [Recovered/Resolved]
  - Arthralgia [Recovering/Resolving]
  - Joint swelling [Recovering/Resolving]
  - Gait inability [Recovering/Resolving]
  - Muscle spasms [Recovered/Resolved]
  - Ocular discomfort [Recovering/Resolving]
  - Head discomfort [Recovering/Resolving]
  - Cold sweat [Recovering/Resolving]
  - Vision blurred [Recovering/Resolving]
  - Dizziness [Recovering/Resolving]
  - Gout [Recovered/Resolved]
  - Pruritus [Recovering/Resolving]
  - Blood uric acid increased [Unknown]

NARRATIVE: CASE EVENT DATE: 20220125
